FAERS Safety Report 13276344 (Version 2)
Quarter: 2017Q2

REPORT INFORMATION
  Report Type: Spontaneous
  Country: IR (occurrence: IR)
  Receive Date: 20170228
  Receipt Date: 20170531
  Transmission Date: 20170830
  Serious: Yes (Life-Threatening, Hospitalization)
  Sender: FDA-Public Use
  Company Number: PHHY2017IR030543

PATIENT
  Age: 32 Year
  Sex: Female

DRUGS (3)
  1. LETROZOLE. [Suspect]
     Active Substance: LETROZOLE
     Dosage: 5 MG, QD (DAYS 3-7 OF THE MENSTRUAL CYCLE)
     Route: 065
  2. LETROZOLE. [Suspect]
     Active Substance: LETROZOLE
     Dosage: 5 MG, QD (THIRD CYCLE)
     Route: 065
  3. LETROZOLE. [Suspect]
     Active Substance: LETROZOLE
     Indication: OVULATION INDUCTION
     Dosage: 2.5 MG, QD
     Route: 065

REACTIONS (4)
  - Serous cystadenocarcinoma ovary [Recovered/Resolved]
  - Product use in unapproved indication [Unknown]
  - Abdominal tenderness [Unknown]
  - Therapy non-responder [Unknown]
